FAERS Safety Report 11913439 (Version 1)
Quarter: 2016Q1

REPORT INFORMATION
  Report Type: Other
  Country: AU (occurrence: AU)
  Receive Date: 20160113
  Receipt Date: 20160113
  Transmission Date: 20160526
  Serious: Yes (Hospitalization)
  Sender: FDA-Public Use
  Company Number: AU-WARNER CHILCOTT, LLC-1046454

PATIENT
  Age: 64 Year
  Sex: Female
  Weight: 64.14 kg

DRUGS (3)
  1. THYROXINE [Concomitant]
     Active Substance: LEVOTHYROXINE
  2. SERTRALINE [Concomitant]
     Active Substance: SERTRALINE HYDROCHLORIDE
  3. ACTONEL [Suspect]
     Active Substance: RISEDRONATE SODIUM
     Route: 048
     Dates: start: 2005, end: 201411

REACTIONS (3)
  - Atypical femur fracture [Not Recovered/Not Resolved]
  - Femur fracture [Not Recovered/Not Resolved]
  - Pain in extremity [Not Recovered/Not Resolved]
